FAERS Safety Report 9606374 (Version 2)
Quarter: 2013Q4

REPORT INFORMATION
  Report Type: Spontaneous
  Country: US (occurrence: US)
  Receive Date: 20131008
  Receipt Date: 20131008
  Transmission Date: 20140711
  Serious: No
  Sender: FDA-Public Use
  Company Number: US-AMGEN-USASP2013046785

PATIENT
  Age: 90 Year
  Sex: Female
  Weight: 61.68 kg

DRUGS (6)
  1. PROLIA [Suspect]
     Indication: OSTEOPOROSIS
     Dosage: 60 MG, Q6MO
     Route: 058
     Dates: start: 20121003
  2. DIOVAN HCT [Concomitant]
     Indication: HYPERTENSION
     Dosage: 160/25
     Route: 048
  3. LIPITOR [Concomitant]
     Indication: HYPERCHOLESTEROLAEMIA
     Dosage: 80 MG, QD
  4. VITAMIN D3 [Concomitant]
     Dosage: 2000 UNK, QD
     Route: 048
  5. PAXIL                              /00500401/ [Concomitant]
     Indication: DEPRESSION
     Dosage: 20 MG, QD
     Route: 048
  6. LEVOTHYROXINE [Concomitant]
     Indication: HYPERTHYROIDISM
     Dosage: 62.5 UNK, QD
     Route: 048

REACTIONS (3)
  - Sciatica [Not Recovered/Not Resolved]
  - Bronchitis [Unknown]
  - Cough [Unknown]
